FAERS Safety Report 4769091-2 (Version None)
Quarter: 2005Q3

REPORT INFORMATION
  Report Type: 
  Country: None (occurrence: None)
  Receive Date: 20050912
  Receipt Date: 20050622
  Transmission Date: 20060218
  Serious: Yes (Hospitalization)
  Sender: FDA-Public Use
  Company Number: 2005-BP-10685BP

PATIENT
  Sex: Male

DRUGS (1)
  1. VIRAMUNE [Suspect]
     Dosage: 400 MG (200 MG, 2 IN 1 D), PO
     Route: 048
     Dates: start: 20050525

REACTIONS (1)
  - STEVENS-JOHNSON SYNDROME [None]
